FAERS Safety Report 18263695 (Version 2)
Quarter: 2021Q1

REPORT INFORMATION
  Report Type: Spontaneous
  Country: US (occurrence: US)
  Receive Date: 20200914
  Receipt Date: 20210131
  Transmission Date: 20210419
  Serious: Yes (Death, Other)
  Sender: FDA-Public Use
  Company Number: US-PURDUE-USA-2020-0165904

PATIENT
  Sex: Male

DRUGS (3)
  1. HEROIN [Suspect]
     Active Substance: DIAMORPHINE
     Indication: PRODUCT USED FOR UNKNOWN INDICATION
     Dosage: UNK
     Route: 065
  2. OXYCONTIN [Suspect]
     Active Substance: OXYCODONE HYDROCHLORIDE
     Indication: PRODUCT USED FOR UNKNOWN INDICATION
     Dosage: UNK
     Route: 048
  3. OXYCODONE HCL CR TABLETS (SIMILAR TO NDA 22?272) [Suspect]
     Active Substance: OXYCODONE HYDROCHLORIDE
     Indication: PRODUCT USED FOR UNKNOWN INDICATION
     Dosage: UNK
     Route: 048

REACTIONS (14)
  - Drug dependence [Unknown]
  - Emotional distress [Unknown]
  - Back pain [Unknown]
  - Pain [Unknown]
  - Injury [Unknown]
  - Post-traumatic stress disorder [Unknown]
  - Headache [Unknown]
  - Overdose [Fatal]
  - Cardiac disorder [Unknown]
  - Drug withdrawal syndrome [Unknown]
  - Road traffic accident [Unknown]
  - Hospitalisation [Unknown]
  - Drug abuse [Unknown]
  - Stress [Unknown]

NARRATIVE: CASE EVENT DATE: 20150818
